FAERS Safety Report 23056129 (Version 1)
Quarter: 2023Q4

REPORT INFORMATION
  Report Type: Spontaneous
  Country: US (occurrence: US)
  Receive Date: 20231011
  Receipt Date: 20231011
  Transmission Date: 20240110
  Serious: Yes (Hospitalization, Other)
  Sender: FDA-Public Use
  Company Number: US-GLAXOSMITHKLINE-US2023GSK138388

PATIENT

DRUGS (2)
  1. VALACYCLOVIR HYDROCHLORIDE [Suspect]
     Active Substance: VALACYCLOVIR HYDROCHLORIDE
     Indication: Herpes zoster
     Dosage: UNK
     Route: 048
  2. VALACYCLOVIR HYDROCHLORIDE [Suspect]
     Active Substance: VALACYCLOVIR HYDROCHLORIDE
     Indication: Rash

REACTIONS (10)
  - Nephropathy toxic [Unknown]
  - Neurotoxicity [Unknown]
  - Hypophagia [Unknown]
  - Headache [Unknown]
  - Encephalopathy [Recovering/Resolving]
  - Acute kidney injury [Recovered/Resolved]
  - Condition aggravated [Recovering/Resolving]
  - Obstructive airways disorder [Unknown]
  - Oliguria [Not Recovered/Not Resolved]
  - Toxicity to various agents [Unknown]
